FAERS Safety Report 10078696 (Version 2)
Quarter: 2014Q2

REPORT INFORMATION
  Report Type: Spontaneous
  Country: PL (occurrence: None)
  Receive Date: 20140411
  Receipt Date: 20140425
  Transmission Date: 20141212
  Serious: Yes (Other)
  Sender: FDA-Public Use
  Company Number: AUR-APL-2014-04301

PATIENT
  Age: 26 Year
  Sex: Female

DRUGS (2)
  1. MONTELUKAST [Suspect]
     Indication: ASTHMA
  2. FLUTICASONE [Suspect]
     Indication: ASTHMA

REACTIONS (3)
  - Drug ineffective [None]
  - Asthma [None]
  - Condition aggravated [None]
